FAERS Safety Report 7549598-5 (Version None)
Quarter: 2011Q2

REPORT INFORMATION
  Report Type: 
  Country: None (occurrence: None)
  Receive Date: 20110615
  Receipt Date: 20110606
  Transmission Date: 20111010
  Serious: Yes (Hospitalization)
  Sender: FDA-Public Use
  Company Number: B0646459A

PATIENT
  Sex: Female
  Weight: 64.9 kg

DRUGS (10)
  1. COLCHICINE [Concomitant]
     Indication: IDIOPATHIC THROMBOCYTOPENIC PURPURA
     Dosage: .5MG PER DAY
     Route: 048
     Dates: start: 20090818, end: 20100306
  2. EUCLIDAN [Concomitant]
  3. TENORMIN [Concomitant]
     Dosage: 100MG PER DAY
  4. XANAX [Concomitant]
     Indication: ANXIETY
     Dosage: .25MG TWICE PER DAY
     Route: 048
     Dates: start: 20090818, end: 20100306
  5. DICLOFENAC SODIUM [Concomitant]
     Indication: CARPAL TUNNEL SYNDROME
     Dosage: 25MG THREE TIMES PER DAY
     Route: 048
  6. ELTROMBOPAG [Suspect]
     Route: 048
     Dates: start: 20100302
  7. PREDNISOLONE [Concomitant]
     Indication: IDIOPATHIC THROMBOCYTOPENIC PURPURA
     Dosage: 15MG PER DAY
     Dates: start: 20090701
  8. BETA BLOCKER [Concomitant]
     Indication: ANXIETY
     Route: 065
  9. DIOVAN [Concomitant]
     Indication: HYPERTENSION
     Dosage: 80MG PER DAY
     Route: 048
     Dates: start: 20090909, end: 20100306
  10. ADALAT [Concomitant]
     Dosage: 30MG PER DAY

REACTIONS (12)
  - BLOOD UREA INCREASED [None]
  - DEHYDRATION [None]
  - THROMBOCYTOPENIA [None]
  - RENAL FAILURE ACUTE [None]
  - BLOOD CREATININE INCREASED [None]
  - NAUSEA [None]
  - OLIGURIA [None]
  - VOMITING [None]
  - ANAEMIA [None]
  - FOCAL SEGMENTAL GLOMERULOSCLEROSIS [None]
  - HYPOALBUMINAEMIA [None]
  - PROTEINURIA [None]
